FAERS Safety Report 5652079-7 (Version None)
Quarter: 2008Q1

REPORT INFORMATION
  Report Type: 
  Country: None (occurrence: None)
  Receive Date: 20080305
  Receipt Date: 20080222
  Transmission Date: 20080703
  Serious: Yes (Life-Threatening, Disabling)
  Sender: FDA-Public Use
  Company Number: GB-PFIZER INC-2008018168

PATIENT
  Age: 68 Year
  Sex: Male
  Weight: 95 kg

DRUGS (14)
  1. LYRICA [Suspect]
     Indication: PAIN
     Route: 048
     Dates: start: 20071008, end: 20071114
  2. AMLODIPINE [Concomitant]
     Route: 048
  3. ATORVASTATIN CALCIUM [Concomitant]
     Route: 048
  4. BENDROFLUMETHIAZIDE [Concomitant]
     Route: 048
  5. BUPRENORPHINE HCL [Concomitant]
     Route: 062
     Dates: start: 20070424, end: 20071016
  6. COMBIVENT [Concomitant]
     Route: 055
  7. DICLOFENAC SODIUM [Concomitant]
     Route: 048
  8. DURAGESIC-100 [Concomitant]
     Route: 062
  9. FENTANYL [Concomitant]
     Route: 062
  10. LOSARTAN POTASSIUM [Concomitant]
     Route: 048
  11. OMEPRAZOLE [Concomitant]
     Route: 048
  12. SERETIDE [Concomitant]
     Route: 055
  13. TAMSULOSIN HCL [Concomitant]
     Route: 048
  14. TIOTROPIUM BROMIDE [Concomitant]
     Route: 055

REACTIONS (9)
  - COUGH [None]
  - DISORIENTATION [None]
  - DRUG WITHDRAWAL SYNDROME [None]
  - DYSPNOEA [None]
  - EMOTIONAL DISORDER [None]
  - HYPOKALAEMIA [None]
  - OEDEMA PERIPHERAL [None]
  - SUICIDAL IDEATION [None]
  - WEIGHT INCREASED [None]
